FAERS Safety Report 12558289 (Version 4)
Quarter: 2016Q4

REPORT INFORMATION
  Report Type: Spontaneous
  Country: US (occurrence: US)
  Receive Date: 20160714
  Receipt Date: 20161110
  Transmission Date: 20170207
  Serious: Yes (Hospitalization, Other)
  Sender: FDA-Public Use
  Company Number: US-INCYTE CORPORATION-2016IN003865

PATIENT
  Age: 80 Year
  Sex: Female
  Weight: 138 kg

DRUGS (5)
  1. JAKAFI [Suspect]
     Active Substance: RUXOLITINIB
     Dosage: 10 MG, QD
     Route: 048
     Dates: start: 20160715
  2. LEVOTHYROXINE. [Concomitant]
     Active Substance: LEVOTHYROXINE
     Indication: PRODUCT USED FOR UNKNOWN INDICATION
     Dosage: 25 MCG
  3. JAKAFI [Suspect]
     Active Substance: RUXOLITINIB
     Indication: MYELOFIBROSIS
     Dosage: 10 MG, BID
     Route: 048
     Dates: start: 20160518
  4. LISINOPRIL. [Concomitant]
     Active Substance: LISINOPRIL
     Indication: PRODUCT USED FOR UNKNOWN INDICATION
     Dosage: 40 MG, UNK
  5. ATENOLOL. [Concomitant]
     Active Substance: ATENOLOL
     Indication: PRODUCT USED FOR UNKNOWN INDICATION
     Dosage: 25 MG, UNK

REACTIONS (17)
  - Haemorrhage [Recovered/Resolved]
  - Weight increased [Unknown]
  - Right ventricular failure [Unknown]
  - Discomfort [Unknown]
  - Intra-abdominal fluid collection [Unknown]
  - Coagulopathy [Unknown]
  - Fluid retention [Unknown]
  - Generalised oedema [Unknown]
  - Contusion [Unknown]
  - Haemoglobin decreased [Recovering/Resolving]
  - Mobility decreased [Unknown]
  - Splenomegaly [Unknown]
  - Abdominal distension [Unknown]
  - Peripheral swelling [Unknown]
  - Hepatomegaly [Unknown]
  - Ascites [Unknown]
  - Helicobacter infection [Unknown]

NARRATIVE: CASE EVENT DATE: 20160607
